FAERS Safety Report 8897291 (Version 1)
Quarter: 2012Q4

REPORT INFORMATION
  Report Type: 
  Country: US (occurrence: US)
  Receive Date: 20121108
  Receipt Date: 20121108
  Transmission Date: 20130627
  Serious: No
  Sender: FDA-Public Use
  Company Number: US-AMGEN-USASP2012025842

PATIENT
  Age: 51 Year
  Sex: Male
  Weight: 54.42 kg

DRUGS (10)
  1. ENBREL [Suspect]
     Indication: PSORIATIC ARTHROPATHY
     Dosage: 50 mg, qwk
     Route: 058
  2. SINGULAIR [Concomitant]
     Dosage: 10 mg, UNK
     Route: 048
  3. AMLODIPINE [Concomitant]
     Dosage: 10 mg, UNK
     Route: 048
  4. LIPITOR [Concomitant]
     Dosage: 20 mg, UNK
     Route: 048
  5. VICODIN [Concomitant]
     Route: 048
  6. DIOVAN [Concomitant]
     Dosage: 160 mg, UNK
     Route: 048
  7. CARVEDILOL [Concomitant]
     Dosage: 12.5 mg, UNK
     Route: 048
  8. MULTI TABS [Concomitant]
     Dosage: UNK
     Route: 048
  9. BABY ASPIRIN [Concomitant]
     Dosage: 81 mg, UNK
     Route: 048
  10. HYDROCHLOROTHIAZIDE W/TRIAMTERENE [Concomitant]
     Route: 048

REACTIONS (1)
  - Sinusitis [Recovered/Resolved]
